FAERS Safety Report 5406714-9 (Version None)
Quarter: 2007Q3

REPORT INFORMATION
  Report Type: 
  Country: None (occurrence: None)
  Receive Date: 20070806
  Receipt Date: 20070806
  Transmission Date: 20080115
  Serious: Yes (Death)
  Sender: FDA-Public Use
  Company Number: None

PATIENT
  Age: 73 Year
  Sex: Male

DRUGS (1)
  1. CYPHER RX DRUG ELUTING STENT [Suspect]
     Dates: start: 20070720, end: 20070731

REACTIONS (9)
  - BLOOD FIBRINOGEN INCREASED [None]
  - CHILLS [None]
  - FIBRIN D DIMER INCREASED [None]
  - HAEMATOCRIT DECREASED [None]
  - LEUKOPENIA [None]
  - POST PROCEDURAL COMPLICATION [None]
  - POSTOPERATIVE FEVER [None]
  - RASH [None]
  - THROMBOCYTOPENIA [None]
